FAERS Safety Report 24691131 (Version 1)
Quarter: 2024Q4

REPORT INFORMATION
  Report Type: Spontaneous
  Country: IN (occurrence: IN)
  Receive Date: 20241203
  Receipt Date: 20241203
  Transmission Date: 20250114
  Serious: Yes (Hospitalization)
  Sender: MYLAN
  Company Number: IN-MYLANLABS-2024M1107286

PATIENT
  Age: 51 Year
  Sex: Female

DRUGS (8)
  1. VANCOMYCIN [Suspect]
     Active Substance: VANCOMYCIN
     Indication: Endophthalmitis
     Dosage: UNK
     Route: 031
  2. VANCOMYCIN [Suspect]
     Active Substance: VANCOMYCIN
     Indication: Eye infection staphylococcal
  3. DICLOXACILLIN [Suspect]
     Active Substance: DICLOXACILLIN
     Indication: Endophthalmitis
     Dosage: UNK
     Route: 065
  4. DICLOXACILLIN [Suspect]
     Active Substance: DICLOXACILLIN
     Indication: Eye infection staphylococcal
  5. CEFAZOLIN [Suspect]
     Active Substance: CEFAZOLIN
     Indication: Endophthalmitis
     Dosage: UNK
     Route: 065
  6. CEFAZOLIN [Suspect]
     Active Substance: CEFAZOLIN
     Indication: Eye infection staphylococcal
  7. AMIKACIN [Suspect]
     Active Substance: AMIKACIN
     Indication: Endophthalmitis
     Dosage: UNK
     Route: 031
  8. AMIKACIN [Suspect]
     Active Substance: AMIKACIN
     Indication: Eye infection staphylococcal

REACTIONS (1)
  - Drug ineffective [Unknown]
